FAERS Safety Report 8144519-9 (Version None)
Quarter: 2012Q1

REPORT INFORMATION
  Report Type: 
  Country: None (occurrence: None)
  Receive Date: 20120214
  Receipt Date: 20120131
  Transmission Date: 20120608
  Serious: Yes (Hospitalization, Other)
  Sender: FDA-Public Use
  Company Number: CIP11001932

PATIENT
  Sex: Female

DRUGS (6)
  1. ACTONEL [Suspect]
     Dosage: 35MG, ORAL
     Route: 048
  2. LEVOTHYROXINE SODIUM [Concomitant]
  3. FOSAMAX PLUS D [Suspect]
     Indication: OSTEOPOROSIS
     Dosage: ORAL
     Route: 048
  4. ALENDRAONATE (ALENDRONATE SODIUM) [Suspect]
     Indication: OSTEOPOROSIS
     Dosage: 70 MG, ORAL
     Route: 048
  5. CRESTOR [Concomitant]
  6. FOSAMAX [Suspect]
     Indication: OSTEOPOROSIS
     Dosage: 70 MG, ORAL
     Route: 048

REACTIONS (12)
  - OEDEMA PERIPHERAL [None]
  - PAIN IN EXTREMITY [None]
  - FEMUR FRACTURE [None]
  - TOXICITY TO VARIOUS AGENTS [None]
  - PATHOLOGICAL FRACTURE [None]
  - FRACTURE NONUNION [None]
  - REFUSAL OF TREATMENT BY PATIENT [None]
  - STRESS [None]
  - DEVICE FAILURE [None]
  - LOW TURNOVER OSTEOPATHY [None]
  - FALL [None]
  - OSTEOGENESIS IMPERFECTA [None]
